FAERS Safety Report 10362868 (Version 2)
Quarter: 2014Q3

REPORT INFORMATION
  Report Type: Spontaneous
  Country: DK (occurrence: CH)
  Receive Date: 20140805
  Receipt Date: 20140815
  Transmission Date: 20150326
  Serious: Yes (Hospitalization, Other)
  Sender: FDA-Public Use
  Company Number: CH-FRI-1000069579

PATIENT
  Sex: Female

DRUGS (7)
  1. HEPTAMINOL [Concomitant]
     Active Substance: HEPTAMINOL
     Dates: end: 2014
  2. TRAMAL [Suspect]
     Active Substance: TRAMADOL
     Dosage: 220 MG DAILY
  3. TRAMAL [Suspect]
     Active Substance: TRAMADOL
     Indication: MIGRAINE
     Dosage: 450 MG
  4. STILNOX [Concomitant]
     Active Substance: ZOLPIDEM TARTRATE
     Dosage: 10 MG
     Dates: end: 2014
  5. ESCITALOPRAM [Suspect]
     Active Substance: ESCITALOPRAM OXALATE
     Dosage: 8 MG DAILY
     Route: 048
  6. ESCITALOPRAM [Suspect]
     Active Substance: ESCITALOPRAM OXALATE
     Indication: DEPRESSION
     Dosage: OVERDOSE: 25 MG DAILY
     Route: 048
  7. ZALDIAR [Suspect]
     Active Substance: ACETAMINOPHEN\TRAMADOL HYDROCHLORIDE
     Indication: MIGRAINE
     Route: 048
     Dates: end: 2014

REACTIONS (3)
  - Pregnancy [Unknown]
  - Generalised tonic-clonic seizure [Not Recovered/Not Resolved]
  - Overdose [Not Recovered/Not Resolved]

NARRATIVE: CASE EVENT DATE: 20130903
